FAERS Safety Report 9105135 (Version 1)
Quarter: 2013Q1

REPORT INFORMATION
  Report Type: Spontaneous
  Country: HU (occurrence: HU)
  Receive Date: 20130220
  Receipt Date: 20130220
  Transmission Date: 20140127
  Serious: Yes (Other)
  Sender: FDA-Public Use
  Company Number: HU-SANOFI-AVENTIS-2013SA013082

PATIENT
  Age: 58 Year
  Sex: Male

DRUGS (2)
  1. MULTAQ [Suspect]
     Indication: ARRHYTHMIA
     Dosage: HALF TABLET TWICE A DAY
     Route: 048
     Dates: start: 20130208, end: 20130210
  2. NEBIVOLOL [Concomitant]
     Indication: PRODUCT USED FOR UNKNOWN INDICATION
     Dates: start: 2008, end: 20130207

REACTIONS (5)
  - Arrhythmia [Recovered/Resolved]
  - Condition aggravated [Recovered/Resolved]
  - Atrial fibrillation [Recovered/Resolved]
  - Drug ineffective [Recovered/Resolved]
  - Underdose [Recovered/Resolved]
